FAERS Safety Report 21213448 (Version 2)
Quarter: 2022Q4

REPORT INFORMATION
  Report Type: Spontaneous
  Country: US (occurrence: US)
  Receive Date: 20220815
  Receipt Date: 20221021
  Transmission Date: 20230113
  Serious: Yes (Other)
  Sender: FDA-Public Use
  Company Number: US-JNJFOC-20220820297

PATIENT
  Age: 44 Year
  Sex: Female

DRUGS (10)
  1. ELMIRON [Suspect]
     Active Substance: PENTOSAN POLYSULFATE SODIUM
     Indication: Cystitis interstitial
     Dosage: 300 MG/DAILY
     Route: 048
     Dates: start: 201202, end: 201501
  2. ELMIRON [Suspect]
     Active Substance: PENTOSAN POLYSULFATE SODIUM
     Dosage: 300 MG/DAILY
     Route: 048
     Dates: start: 201503, end: 201504
  3. ELMIRON [Suspect]
     Active Substance: PENTOSAN POLYSULFATE SODIUM
     Dosage: 300 MG/DAILY
     Route: 048
     Dates: start: 201603, end: 201603
  4. ELMIRON [Suspect]
     Active Substance: PENTOSAN POLYSULFATE SODIUM
     Dosage: 300 MG/DAILY
     Route: 048
     Dates: start: 201605, end: 201608
  5. ELMIRON [Suspect]
     Active Substance: PENTOSAN POLYSULFATE SODIUM
     Dosage: 300 MG/DAILY
     Route: 048
     Dates: start: 201611, end: 201710
  6. ELMIRON [Suspect]
     Active Substance: PENTOSAN POLYSULFATE SODIUM
     Route: 048
     Dates: end: 2018
  7. TIZANIDINE [Concomitant]
     Active Substance: TIZANIDINE
     Indication: Cystitis interstitial
     Dates: start: 2011
  8. TIZANIDINE [Concomitant]
     Active Substance: TIZANIDINE
     Indication: Back pain
  9. PRILOSEC [Concomitant]
     Active Substance: OMEPRAZOLE MAGNESIUM
     Indication: Gastrooesophageal reflux disease
     Dates: start: 2008
  10. ALLOPURINOL [Concomitant]
     Active Substance: ALLOPURINOL
     Indication: Gout
     Dates: start: 2018

REACTIONS (2)
  - Maculopathy [Unknown]
  - Vitreoretinal traction syndrome [Unknown]

NARRATIVE: CASE EVENT DATE: 20210801
